FAERS Safety Report 6119498-6 (Version None)
Quarter: 2009Q1

REPORT INFORMATION
  Report Type: 
  Country: None (occurrence: None)
  Receive Date: 20090316
  Receipt Date: 20090306
  Transmission Date: 20090719
  Serious: Yes (Hospitalization)
  Sender: FDA-Public Use
  Company Number: A0773179A

PATIENT
  Age: 60 Year
  Sex: Female

DRUGS (5)
  1. AVANDIA [Suspect]
     Indication: DIABETES MELLITUS
     Dosage: 4MG PER DAY
     Route: 048
     Dates: start: 20050621, end: 20060821
  2. AVANDAMET [Suspect]
     Route: 048
     Dates: start: 20060822, end: 20070601
  3. METOPROLOL TARTRATE [Concomitant]
  4. MICARDIS [Concomitant]
  5. GABAPENTIN [Concomitant]

REACTIONS (1)
  - MYOCARDIAL INFARCTION [None]
